FAERS Safety Report 5805296-7 (Version None)
Quarter: 2008Q3

REPORT INFORMATION
  Report Type: 
  Country: None (occurrence: None)
  Receive Date: 20080708
  Receipt Date: 20080625
  Transmission Date: 20090109
  Serious: Yes (Other)
  Sender: FDA-Public Use
  Company Number: S08-USA-02210-01

PATIENT
  Sex: Female

DRUGS (2)
  1. LEXAPRO [Suspect]
  2. LEXAPRO [Suspect]
     Dosage: 10 MG QD PO
     Route: 048
     Dates: start: 20060801

REACTIONS (12)
  - AGGRESSION [None]
  - AMNESIA [None]
  - DIARRHOEA [None]
  - HEADACHE [None]
  - IMPAIRED WORK ABILITY [None]
  - MOOD SWINGS [None]
  - NAUSEA [None]
  - NIGHTMARE [None]
  - PARAESTHESIA [None]
  - SCREAMING [None]
  - SLEEP TERROR [None]
  - WITHDRAWAL SYNDROME [None]
